FAERS Safety Report 14674667 (Version 2)
Quarter: 2018Q2

REPORT INFORMATION
  Report Type: Spontaneous
  Country: AU (occurrence: AU)
  Receive Date: 20180323
  Receipt Date: 20180501
  Transmission Date: 20180711
  Serious: Yes (Hospitalization, Other)
  Sender: FDA-Public Use
  Company Number: AU-AMGEN-AUSSL2018037841

PATIENT
  Age: 72 Year
  Sex: Female
  Weight: 61.2 kg

DRUGS (12)
  1. PANTOPRAZOLE [Concomitant]
     Active Substance: PANTOPRAZOLE
     Dosage: 20 MG, QD ON ALTERNATE DAYS
     Route: 048
     Dates: end: 201711
  2. EZETIMIBE. [Concomitant]
     Active Substance: EZETIMIBE
     Dosage: 10 MG, QD
     Route: 048
  3. REPATHA [Suspect]
     Active Substance: EVOLOCUMAB
     Indication: HYPERCHOLESTEROLAEMIA
     Dosage: 140 MG/ML, Q2WK
     Route: 058
     Dates: start: 201610
  4. VINCRISTINE [Suspect]
     Active Substance: VINCRISTINE
     Indication: LYMPHOMA
     Dosage: UNK
     Route: 065
  5. ASPIRIN. [Concomitant]
     Active Substance: ASPIRIN
     Dosage: 100 MG, QD
     Route: 048
  6. OESTRIOL [Concomitant]
     Dosage: UNK MG/G, BID
     Route: 067
  7. METOPROLOL. [Concomitant]
     Active Substance: METOPROLOL
     Indication: HYPERTENSION
     Dosage: 12.5 MG, BID
     Dates: start: 201712
  8. RITUXIMAB. [Suspect]
     Active Substance: RITUXIMAB
     Indication: LYMPHOMA
     Dosage: UNK
     Route: 065
  9. INDAPAMIDE. [Suspect]
     Active Substance: INDAPAMIDE
     Indication: HYPERTENSION
     Dosage: UNK
     Route: 065
     Dates: start: 2014, end: 201711
  10. LERCANIDIPINE [Concomitant]
     Active Substance: LERCANIDIPINE
     Dosage: 5 MG, QD
     Route: 048
  11. FEBUXOSTAT. [Concomitant]
     Active Substance: FEBUXOSTAT
     Dosage: 80 MG, QD
     Route: 048
  12. VALSARTAN. [Concomitant]
     Active Substance: VALSARTAN
     Dosage: 320 MG, QD
     Route: 048

REACTIONS (12)
  - Constipation [Unknown]
  - Cough [Unknown]
  - Fatigue [Unknown]
  - Lymphoma [Not Recovered/Not Resolved]
  - Night sweats [Unknown]
  - Decreased appetite [Unknown]
  - Diarrhoea [Unknown]
  - Hyponatraemia [Unknown]
  - Infusion related reaction [Unknown]
  - Delirium [Unknown]
  - Dyspnoea [Unknown]
  - Weight decreased [Unknown]

NARRATIVE: CASE EVENT DATE: 201711
